FAERS Safety Report 16304797 (Version 1)
Quarter: 2019Q2

REPORT INFORMATION
  Report Type: Spontaneous
  Country: US (occurrence: US)
  Receive Date: 20190405
  Receipt Date: 20190405
  Transmission Date: 20190711
  Serious: Yes (Disabling)
  Sender: FDA-Public Use
  Company Number: None

PATIENT
  Age: 63 Year
  Sex: Male
  Weight: 86.18 kg

DRUGS (4)
  1. DOXYCYCLINE 100MG [Suspect]
     Active Substance: DOXYCYCLINE
     Indication: POLLAKIURIA
     Dosage: ?          QUANTITY:2 DF DOSAGE FORM;?
     Route: 048
     Dates: start: 20181019, end: 20181024
  2. VITAMIN D [Concomitant]
     Active Substance: VITAMIN D NOS
  3. SC 3 OIL [Concomitant]
  4. ZILPIDEM TARTRATE [Concomitant]

REACTIONS (5)
  - Headache [None]
  - Hypoacusis [None]
  - Taste disorder [None]
  - Vision blurred [None]
  - Parosmia [None]

NARRATIVE: CASE EVENT DATE: 20181020
